FAERS Safety Report 7050513-1 (Version None)
Quarter: 2010Q4

REPORT INFORMATION
  Report Type: 
  Country: None (occurrence: None)
  Receive Date: 20101018
  Receipt Date: 20101008
  Transmission Date: 20110411
  Serious: Yes (Hospitalization)
  Sender: FDA-Public Use
  Company Number: US-PFIZER INC-2010106088

PATIENT
  Sex: Male

DRUGS (11)
  1. *PREDNISONE [Suspect]
     Indication: PROSTATE CANCER
     Dosage: 5 MG, 2X/DAY
     Route: 048
     Dates: start: 20091104
  2. BLINDED *NO SUBJECT DRUG [Suspect]
     Indication: PROSTATE CANCER
     Dosage: 50 MG, 1X/DAY
     Route: 048
     Dates: start: 20091104
  3. BLINDED *PLACEBO [Suspect]
     Indication: PROSTATE CANCER
     Dosage: 50 MG, 1X/DAY
     Route: 048
     Dates: start: 20091104
  4. SUNITINIB MALATE [Suspect]
     Indication: PROSTATE CANCER
     Dosage: 50 MG, 1X/DAY
     Route: 048
     Dates: start: 20091104
  5. CALCIUM [Concomitant]
     Indication: PROPHYLAXIS
     Dosage: UNK
  6. VITAMIN D [Concomitant]
     Indication: MEDICAL DIET
     Dosage: UNK
  7. PERCOCET [Concomitant]
     Indication: SCROTAL PAIN
     Dosage: UNK
  8. FERROUS SULFATE [Concomitant]
     Indication: ANAEMIA
     Dosage: UNK
  9. LISINOPRIL [Concomitant]
     Indication: HYPERTENSION
     Dosage: UNK
  10. OXYCODONE [Concomitant]
     Indication: SCROTAL PAIN
     Dosage: UNK
  11. MS CONTIN [Concomitant]
     Indication: SCROTAL PAIN
     Dosage: UNK

REACTIONS (1)
  - PNEUMONIA [None]
